FAERS Safety Report 15942007 (Version 1)
Quarter: 2019Q1

REPORT INFORMATION
  Report Type: Spontaneous
  Country: US (occurrence: US)
  Receive Date: 20190211
  Receipt Date: 20190211
  Transmission Date: 20190417
  Serious: Yes (Disabling)
  Sender: FDA-Public Use
  Company Number: None

PATIENT
  Age: 50 Year
  Sex: Female
  Weight: 96.75 kg

DRUGS (12)
  1. AIMOVIG [Suspect]
     Active Substance: ERENUMAB-AOOE
     Indication: MIGRAINE
     Dosage: ?          QUANTITY:1 INJECTION(S);OTHER FREQUENCY:A MONTH;?
     Route: 058
  2. CRESTOR [Concomitant]
     Active Substance: ROSUVASTATIN CALCIUM
  3. CYMBALTA [Concomitant]
     Active Substance: DULOXETINE HYDROCHLORIDE
  4. CQ10 [Concomitant]
     Active Substance: UBIDECARENONE
  5. TRAMADOL. [Concomitant]
     Active Substance: TRAMADOL
  6. ZANAFLEX [Concomitant]
     Active Substance: TIZANIDINE HYDROCHLORIDE
  7. VITAMIN D [Concomitant]
     Active Substance: CHOLECALCIFEROL
  8. DIAZEPAM. [Concomitant]
     Active Substance: DIAZEPAM
  9. COLACE [Concomitant]
     Active Substance: DOCUSATE SODIUM
  10. LYRICA [Concomitant]
     Active Substance: PREGABALIN
  11. FIORCET [Concomitant]
  12. ZOFRAN [Concomitant]
     Active Substance: ONDANSETRON HYDROCHLORIDE

REACTIONS (4)
  - Myalgia [None]
  - Inability to afford medication [None]
  - Musculoskeletal pain [None]
  - Mobility decreased [None]

NARRATIVE: CASE EVENT DATE: 20190115
